FAERS Safety Report 20112554 (Version 1)
Quarter: 2021Q4

REPORT INFORMATION
  Report Type: Spontaneous
  Country: US (occurrence: None)
  Receive Date: 20211124
  Receipt Date: 20211124
  Transmission Date: 20220303
  Serious: No
  Sender: FDA-Public Use
  Company Number: None

PATIENT
  Age: 47 Year
  Sex: Male

DRUGS (1)
  1. REGEN-COV [Suspect]
     Active Substance: CASIRIVIMAB\IMDEVIMAB

REACTIONS (9)
  - Dyspnoea [None]
  - Pain in extremity [None]
  - Peripheral swelling [None]
  - Headache [None]
  - Anxiety [None]
  - Fatigue [None]
  - Feeling cold [None]
  - Pericarditis [None]
  - Peripheral swelling [None]

NARRATIVE: CASE EVENT DATE: 20210824
